FAERS Safety Report 19881491 (Version 1)
Quarter: 2021Q3

REPORT INFORMATION
  Report Type: Spontaneous
  Country: US (occurrence: US)
  Receive Date: 20210924
  Receipt Date: 20210924
  Transmission Date: 20211014
  Serious: Yes (Other)
  Sender: FDA-Public Use
  Company Number: US-TEVA-2021-US-1956176

PATIENT
  Age: 46 Year
  Sex: Female

DRUGS (3)
  1. DICYCLOMINE HYDROCHLORIDE. [Suspect]
     Active Substance: DICYCLOMINE HYDROCHLORIDE
     Indication: AUTOIMMUNE PANCREATITIS
     Dosage: 60 MILLIGRAM DAILY; TWO 10 MG CAPSULES THREE TIMES A DAY
     Route: 065
     Dates: start: 2018
  2. IMODIUM [Concomitant]
     Active Substance: LOPERAMIDE HYDROCHLORIDE
     Route: 065
  3. DICYCLOMINE HYDROCHLORIDE. [Suspect]
     Active Substance: DICYCLOMINE HYDROCHLORIDE
     Dosage: 80 MILLIGRAM DAILY; TWO 10 MG CAPSULES FOUR TIMES A DAY
     Route: 065

REACTIONS (2)
  - Product use in unapproved indication [Unknown]
  - Autoimmune pancreatitis [Unknown]

NARRATIVE: CASE EVENT DATE: 2018
